FAERS Safety Report 24863064 (Version 1)
Quarter: 2025Q1

REPORT INFORMATION
  Report Type: Report from Study
  Country: DE (occurrence: DE)
  Receive Date: 20250120
  Receipt Date: 20250120
  Transmission Date: 20250409
  Serious: Yes (Other)
  Sender: ALCON
  Company Number: DE-Santen Oy-2025-DEU-000181

PATIENT

DRUGS (2)
  1. LATANOPROST\NETARSUDIL MESYLATE [Suspect]
     Active Substance: LATANOPROST\NETARSUDIL MESYLATE
     Indication: Product used for unknown indication
     Route: 047
  2. ILUVIEN [Concomitant]
     Active Substance: FLUOCINOLONE ACETONIDE
     Indication: Diabetic retinal oedema
     Route: 065
     Dates: start: 20240110

REACTIONS (1)
  - Trabeculoplasty [Recovered/Resolved]

NARRATIVE: CASE EVENT DATE: 20241126
